FAERS Safety Report 7773062 (Version 3)
Quarter: 2012Q4

REPORT INFORMATION
  Report Type: 
  Country: KR (occurrence: KR)
  Receive Date: 20110125
  Receipt Date: 20121127
  Transmission Date: 20130627
  Serious: Yes (Other)
  Sender: FDA-Public Use
  Company Number: KR-ELI_LILLY_AND_COMPANY-KR201101004078

PATIENT

DRUGS (3)
  1. GEMCITABINE HYDROCHLORIDE [Suspect]
     Indication: NON-SMALL CELL LUNG CANCER
     Dosage: 1000 mg/m2, unknown
     Route: 065
  2. BEVACIZUMAB [Concomitant]
     Dosage: 15 mg/kg, unknown
     Route: 065
  3. CARBOPLATIN [Concomitant]
     Dosage: AUC 5, unknown
     Route: 065

REACTIONS (1)
  - Pneumonia [Unknown]
